FAERS Safety Report 16711454 (Version 1)
Quarter: 2019Q3

REPORT INFORMATION
  Report Type: Spontaneous
  Country: US (occurrence: US)
  Receive Date: 20190816
  Receipt Date: 20190816
  Transmission Date: 20191004
  Serious: Yes (Death, Other)
  Sender: FDA-Public Use
  Company Number: US-ASTRAZENECA-2019SF16192

PATIENT
  Age: 84 Year
  Sex: Male

DRUGS (8)
  1. PROZAC [Concomitant]
     Active Substance: FLUOXETINE HYDROCHLORIDE
     Indication: OBSESSIVE-COMPULSIVE DISORDER
  2. LORAZEPAM. [Concomitant]
     Active Substance: LORAZEPAM
  3. XANAX [Concomitant]
     Active Substance: ALPRAZOLAM
  4. GEODON [Concomitant]
     Active Substance: ZIPRASIDONE HYDROCHLORIDE\ZIPRASIDONE MESYLATE
  5. MIRAPEX [Concomitant]
     Active Substance: PRAMIPEXOLE DIHYDROCHLORIDE
  6. SEROQUEL [Suspect]
     Active Substance: QUETIAPINE FUMARATE
     Route: 048
  7. RESTORIL [Concomitant]
     Active Substance: TEMAZEPAM
  8. SEROQUEL [Suspect]
     Active Substance: QUETIAPINE FUMARATE
     Dosage: 100.0MG EVERY 8 - 12 HOURS
     Route: 048

REACTIONS (14)
  - Parkinson^s disease [Fatal]
  - Pneumonia aspiration [Unknown]
  - Agitation [Unknown]
  - Mental disorder [Unknown]
  - Weight decreased [Unknown]
  - Paranoia [Unknown]
  - Asthenia [Unknown]
  - Mania [Unknown]
  - Gait inability [Unknown]
  - Dysphagia [Unknown]
  - Dementia [Unknown]
  - Hallucination [Unknown]
  - Fall [Unknown]
  - Decreased appetite [Unknown]

NARRATIVE: CASE EVENT DATE: 201904
